FAERS Safety Report 4849918-6 (Version None)
Quarter: 2005Q4

REPORT INFORMATION
  Report Type: 
  Country: None (occurrence: None)
  Receive Date: 20051114
  Receipt Date: 20050429
  Transmission Date: 20060501
  Serious: Yes (Life-Threatening, Hospitalization)
  Sender: FDA-Public Use
  Company Number: 20050400115

PATIENT
  Age: 20 Year
  Sex: Female

DRUGS (1)
  1. PROMETHAZINE [Suspect]
     Indication: NAUSEA
     Dosage: 6.25 MG; ONCE; IV
     Route: 042
     Dates: start: 20040903, end: 20040903

REACTIONS (1)
  - RESPIRATORY ARREST [None]
